FAERS Safety Report 10916174 (Version 1)
Quarter: 2015Q1

REPORT INFORMATION
  Report Type: Spontaneous
  Country: US (occurrence: None)
  Receive Date: 20150311
  Receipt Date: 20150311
  Transmission Date: 20150721
  Serious: Yes (Hospitalization)
  Sender: FDA-Public Use
  Company Number: None

PATIENT
  Age: 12 Year
  Sex: Male
  Weight: 53.8 kg

DRUGS (1)
  1. PREDNISONE. [Suspect]
     Active Substance: PREDNISONE
     Dates: start: 20150219

REACTIONS (12)
  - Fall [None]
  - Blood creatinine increased [None]
  - Staphylococcus test positive [None]
  - Arthritis bacterial [None]
  - Peripheral swelling [None]
  - Pain in extremity [None]
  - Erythema [None]
  - Joint effusion [None]
  - Abscess [None]
  - Haemoglobin decreased [None]
  - Oedema peripheral [None]
  - Pyrexia [None]

NARRATIVE: CASE EVENT DATE: 20150222
